FAERS Safety Report 5676587-8 (Version None)
Quarter: 2008Q1

REPORT INFORMATION
  Report Type: 
  Country: None (occurrence: None)
  Receive Date: 20080318
  Receipt Date: 20080303
  Transmission Date: 20080703
  Serious: Yes (Other)
  Sender: FDA-Public Use
  Company Number: E2020-01951-SPO-GB

PATIENT
  Age: 84 Year
  Sex: Female

DRUGS (6)
  1. DONEPEZIL HCL [Suspect]
     Indication: DRUG USE FOR UNKNOWN INDICATION
     Dosage: 10 MG, 1 IN 1 D, ORAL
     Route: 048
     Dates: start: 20071025, end: 20071210
  2. ARICEPT [Concomitant]
  3. BENDROFLUMETHIAZIDE (BENDROFLUMETHIAZIDE) [Concomitant]
  4. ENALAPRIL MALEATE [Concomitant]
  5. FLUOXETINE [Concomitant]
  6. LANSOPRAZOLE [Concomitant]

REACTIONS (9)
  - ANXIETY [None]
  - DEPRESSED LEVEL OF CONSCIOUSNESS [None]
  - DEPRESSION [None]
  - DYSARTHRIA [None]
  - FALL [None]
  - GENERAL PHYSICAL HEALTH DETERIORATION [None]
  - HEADACHE [None]
  - MEMORY IMPAIRMENT [None]
  - MENTAL DISORDER [None]
